FAERS Safety Report 6905074-1 (Version None)
Quarter: 2010Q3

REPORT INFORMATION
  Report Type: 
  Country: None (occurrence: None)
  Receive Date: 20100804
  Receipt Date: 20090916
  Transmission Date: 20110219
  Serious: Yes (Other)
  Sender: FDA-Public Use
  Company Number: US-PFIZER INC-2009243292

PATIENT
  Age: 64 Year
  Sex: Female
  Weight: 110.66 kg

DRUGS (10)
  1. LYRICA [Suspect]
     Indication: FIBROMYALGIA
     Dosage: 150 MG, 2X/DAY
     Dates: start: 20080123, end: 20080807
  2. HYDROCHLOROTHIAZIDE [Concomitant]
     Dosage: UNK
     Dates: start: 20060101, end: 20090101
  3. METHOCARBAMOL [Concomitant]
     Dosage: UNK
     Dates: start: 20060101
  4. MORPHINE SULFATE [Concomitant]
     Dosage: UNK
     Dates: start: 20080101, end: 20090101
  5. TOPROL-XL [Concomitant]
     Dosage: UNK
     Dates: start: 20090101
  6. ZANTAC [Concomitant]
     Dosage: UNK
     Dates: start: 20090101
  7. CARAFATE [Concomitant]
     Dosage: UNK
     Dates: start: 20080101
  8. PERCOCET [Concomitant]
     Dosage: UNK
     Dates: start: 20070101, end: 20090101
  9. SERTRALINE [Concomitant]
     Dosage: UNK
     Dates: start: 20090101
  10. MIRAPEX [Concomitant]
     Dosage: UNK
     Dates: start: 20080101, end: 20090101

REACTIONS (1)
  - PLATELET COUNT DECREASED [None]
